FAERS Safety Report 6227591-2 (Version None)
Quarter: 2009Q2

REPORT INFORMATION
  Report Type: 
  Country: None (occurrence: None)
  Receive Date: 20090612
  Receipt Date: 20090603
  Transmission Date: 20091009
  Serious: Yes (Hospitalization, Other)
  Sender: FDA-Public Use
  Company Number: BR-BIOGENIDEC-2009BI009550

PATIENT
  Age: 52 Year
  Sex: Female

DRUGS (1)
  1. AVONEX [Suspect]
     Indication: MULTIPLE SCLEROSIS
     Route: 030
     Dates: start: 20030101

REACTIONS (8)
  - AMNESIA [None]
  - ANAEMIA [None]
  - CONSTIPATION [None]
  - HYPOTHERMIA [None]
  - LEUKOPENIA [None]
  - MUSCLE CONTRACTIONS INVOLUNTARY [None]
  - RECTAL PROLAPSE [None]
  - RESPIRATORY ARREST [None]
